FAERS Safety Report 6694334-8 (Version None)
Quarter: 2010Q2

REPORT INFORMATION
  Report Type: 
  Country: None (occurrence: None)
  Receive Date: 20100423
  Receipt Date: 20100416
  Transmission Date: 20101027
  Serious: Yes (Hospitalization, Other)
  Sender: FDA-Public Use
  Company Number: TW-PFIZER INC-2008068048

PATIENT
  Age: 54 Year
  Sex: Female
  Weight: 47 kg

DRUGS (20)
  1. IRINOTECAN HCL [Suspect]
     Indication: COLORECTAL CANCER
     Dosage: 250 MG, EVERY 2 WEEKS
     Route: 042
     Dates: start: 20080805, end: 20080805
  2. FLUOROURACIL [Suspect]
     Indication: COLORECTAL CANCER
     Dosage: 560 MG, EVERY 2 WEEKS
     Route: 040
     Dates: start: 20080805, end: 20080807
  3. FLUOROURACIL [Suspect]
     Dosage: 3400 MG, EVERY 2 WEEKS
     Route: 042
     Dates: start: 20080805, end: 20080807
  4. SUNITINIB MALATE [Suspect]
     Indication: COLORECTAL CANCER
     Dosage: 37.5 MG, 1X/DAY
     Route: 048
     Dates: start: 20080805, end: 20080811
  5. CALCIUM FOLINATE [Suspect]
     Indication: COLORECTAL CANCER
     Dosage: 280 MG, EVERY 2 WEEKS
     Route: 042
     Dates: start: 20080805, end: 20080807
  6. GASCON [Concomitant]
     Indication: DYSPEPSIA
     Dosage: 1 EVERY 3 DAYS
     Dates: start: 20080805, end: 20080810
  7. SENNOSIDES [Concomitant]
     Indication: CONSTIPATION
     Dosage: 2 TABLETS HS
     Dates: start: 20080805, end: 20080810
  8. ALUSA [Concomitant]
     Indication: DYSPEPSIA
     Dosage: 1 EVERY 3 DAYS
     Dates: start: 20080808, end: 20080810
  9. LORAZEPAM [Concomitant]
     Indication: ANXIETY
     Dosage: QD
     Dates: start: 20080805, end: 20080806
  10. METOCLOPRAMIDE HYDROCHLORIDE [Concomitant]
     Indication: PROPHYLAXIS OF NAUSEA AND VOMITING
     Dosage: QD
     Dates: start: 20080805, end: 20080808
  11. NORMAL SALINE [Concomitant]
     Dosage: QD
     Dates: start: 20080805, end: 20080808
  12. TROPISETRON [Concomitant]
     Indication: PROPHYLAXIS OF NAUSEA AND VOMITING
     Dates: start: 20080805, end: 20080806
  13. ATROPIN [Concomitant]
     Indication: CHOLINERGIC SYNDROME
     Dates: start: 20080805, end: 20080805
  14. DIAZEPAM [Concomitant]
     Indication: ANXIETY
     Dosage: QD
     Dates: start: 20080805, end: 20080808
  15. ORADEXON TAB [Concomitant]
     Indication: PROPHYLAXIS
     Dates: start: 20080805, end: 20080805
  16. ACETAMINOPHEN [Concomitant]
     Indication: WOUND COMPLICATION
     Dosage: 1 EVERY 4 DAYS
     Dates: start: 20080729, end: 20080801
  17. CEPHALEXIN [Concomitant]
     Indication: PROPHYLAXIS
     Dosage: 1 EVERY 3 DAYS
     Dates: start: 20080729, end: 20080801
  18. MAGNESIUM OXIDE [Concomitant]
     Indication: CONSTIPATION
     Dosage: 1 EVERY 3 DAYS
     Dates: start: 20080724, end: 20080731
  19. POSTERISAN [Concomitant]
     Indication: HAEMORRHOIDS
     Dates: start: 20080724, end: 20080731
  20. POSTERISAN [Concomitant]
     Indication: CONSTIPATION

REACTIONS (4)
  - ASCITES [None]
  - ILEUS [None]
  - NEUTROPENIA [None]
  - WHITE BLOOD CELL COUNT DECREASED [None]
